FAERS Safety Report 7795022-7 (Version None)
Quarter: 2011Q3

REPORT INFORMATION
  Report Type: 
  Country: None (occurrence: None)
  Receive Date: 20110930
  Receipt Date: 20110922
  Transmission Date: 20111222
  Serious: Yes (Hospitalization, Other)
  Sender: FDA-Public Use
  Company Number: IMP_05430_2011

PATIENT
  Age: 86 Year
  Sex: Female

DRUGS (15)
  1. ASPIRIN [Concomitant]
  2. CARVEDILOL [Concomitant]
  3. FUROSEMIDE [Suspect]
     Indication: DYSPNOEA
     Dosage: (25 MG QD) ; (DF INTRAVENOUS (NOT OTHERWISE SPECIFIED))
     Route: 042
  4. FUROSEMIDE [Suspect]
     Indication: ATRIAL FLUTTER
     Dosage: (25 MG QD) ; (DF INTRAVENOUS (NOT OTHERWISE SPECIFIED))
     Route: 042
  5. DIGOXIN [Suspect]
     Indication: DYSPNOEA
     Dosage: (0.625 MG QD) ; (0.125 MG QD)
  6. DIGOXIN [Suspect]
     Indication: ATRIAL FLUTTER
     Dosage: (0.625 MG QD) ; (0.125 MG QD)
  7. DIGOXIN [Suspect]
     Indication: DYSPNOEA
     Dosage: (0.625 MG QD) ; (0.125 MG QD)
  8. DIGOXIN [Suspect]
     Indication: ATRIAL FLUTTER
     Dosage: (0.625 MG QD) ; (0.125 MG QD)
  9. ENALAPRIL MALEATE [Concomitant]
  10. SPIRONOLACTONE [Suspect]
     Indication: DYSPNOEA
     Dosage: (25 MG QD) ; (50 MG QD INTRAVENOUS (NOT OTHERWISE SPECIFIED))
     Route: 042
  11. SPIRONOLACTONE [Suspect]
     Indication: ATRIAL FLUTTER
     Dosage: (25 MG QD) ; (50 MG QD INTRAVENOUS (NOT OTHERWISE SPECIFIED))
     Route: 042
  12. ISOSORBIDEMONONITRAAT SANDOZ [Concomitant]
  13. ESOMEPRAZOLE SODIUM [Concomitant]
  14. ACE INHIBITOR (ACE INHIBITORS) [Suspect]
     Indication: ATRIAL FLUTTER
     Dosage: (50 MG QD INTRAVENOUS (NOT OTHERWISE SPECIFIED))
     Route: 042
  15. ACE INHIBITOR (ACE INHIBITORS) [Suspect]
     Indication: DYSPNOEA
     Dosage: (50 MG QD INTRAVENOUS (NOT OTHERWISE SPECIFIED))
     Route: 042

REACTIONS (10)
  - BLOOD PRESSURE DIASTOLIC INCREASED [None]
  - RALES [None]
  - ATRIAL FLUTTER [None]
  - DILATATION ATRIAL [None]
  - DYSPNOEA [None]
  - ASPARTATE AMINOTRANSFERASE INCREASED [None]
  - CARDIOACTIVE DRUG LEVEL INCREASED [None]
  - VENTRICULAR EXTRASYSTOLES [None]
  - LEFT VENTRICULAR FAILURE [None]
  - SUPRAVENTRICULAR EXTRASYSTOLES [None]
